FAERS Safety Report 5948238-6 (Version None)
Quarter: 2008Q4

REPORT INFORMATION
  Report Type: 
  Country: None (occurrence: None)
  Receive Date: 20081111
  Receipt Date: 20081028
  Transmission Date: 20090506
  Serious: Yes (Other)
  Sender: FDA-Public Use
  Company Number: FR-ELI_LILLY_AND_COMPANY-FR200810007148

PATIENT
  Age: 77 Year
  Sex: Female

DRUGS (2)
  1. FORTEO [Suspect]
     Indication: OSTEOPOROSIS
     Dosage: 20 UG, DAILY (1/D)
     Route: 065
     Dates: start: 20071113
  2. KARDEGIC /00002703/ [Concomitant]
     Dosage: UNK, UNKNOWN
     Route: 065
     Dates: end: 20081027

REACTIONS (1)
  - ATRIAL FIBRILLATION [None]
